FAERS Safety Report 21875990 (Version 2)
Quarter: 2023Q2

REPORT INFORMATION
  Report Type: Spontaneous
  Country: US (occurrence: US)
  Receive Date: 20230118
  Receipt Date: 20230421
  Transmission Date: 20230722
  Serious: Yes (Hospitalization)
  Sender: FDA-Public Use
  Company Number: US-TEVA-2023-US-2845720

PATIENT
  Age: 45 Year
  Sex: Female

DRUGS (3)
  1. NOREPINEPHRINE [Suspect]
     Active Substance: NOREPINEPHRINE
     Indication: Hypotension
     Route: 065
  2. PHENYLEPHRINE [Suspect]
     Active Substance: PHENYLEPHRINE HYDROCHLORIDE
     Indication: Drug therapy
     Route: 065
  3. VASOPRESSIN [Concomitant]
     Active Substance: VASOPRESSIN
     Indication: Hypotension
     Route: 065

REACTIONS (10)
  - Stress cardiomyopathy [Unknown]
  - Shock [Unknown]
  - Hypotension [Unknown]
  - Tachycardia [Unknown]
  - Sinus arrhythmia [Unknown]
  - Electrocardiogram ST segment depression [Unknown]
  - Systolic dysfunction [Unknown]
  - Akinesia [Unknown]
  - Left ventricular end-diastolic pressure increased [Unknown]
  - Pulmonary arterial pressure increased [Unknown]
